FAERS Safety Report 8319214-3 (Version None)
Quarter: 2012Q2

REPORT INFORMATION
  Report Type: 
  Country: None (occurrence: None)
  Receive Date: 20120427
  Receipt Date: 20120426
  Transmission Date: 20120825
  Serious: Yes (Hospitalization)
  Sender: FDA-Public Use
  Company Number: CZ-MERCK-1204USA03998

PATIENT
  Age: 72 Year
  Sex: Female

DRUGS (1)
  1. JANUVIA [Suspect]
     Route: 048

REACTIONS (3)
  - DIARRHOEA [None]
  - OVERDOSE [None]
  - SUICIDE ATTEMPT [None]
